APPROVED DRUG PRODUCT: VAGIFEM
Active Ingredient: ESTRADIOL
Strength: 25MCG **Federal Register determination that product was not discontinued or withdrawn for safety or effectiveness reasons**
Dosage Form/Route: TABLET;VAGINAL
Application: N020908 | Product #001
Applicant: NOVO NORDISK INC
Approved: Mar 26, 1999 | RLD: Yes | RS: No | Type: DISCN